FAERS Safety Report 4695608-2 (Version None)
Quarter: 2005Q2

REPORT INFORMATION
  Report Type: 
  Country: None (occurrence: None)
  Receive Date: 20050524
  Receipt Date: 20050426
  Transmission Date: 20051028
  Serious: Yes (Hospitalization)
  Sender: FDA-Public Use
  Company Number: JP-BOEHRINGER INGELHEIM PHARMACEUTICALS, INC.-2005-BP-06970NB

PATIENT
  Age: 68 Year
  Sex: Male

DRUGS (1)
  1. MEXITIL [Suspect]
     Indication: DIABETIC NEUROPATHY
     Route: 048
     Dates: start: 20050331, end: 20050411

REACTIONS (2)
  - EXANTHEM [None]
  - RASH [None]
